FAERS Safety Report 6886467-8 (Version None)
Quarter: 2010Q3

REPORT INFORMATION
  Report Type: 
  Country: None (occurrence: None)
  Receive Date: 20100729
  Receipt Date: 20090529
  Transmission Date: 20110219
  Serious: No
  Sender: FDA-Public Use
  Company Number: US-PFIZER INC-2009210213

PATIENT
  Sex: Male

DRUGS (1)
  1. CELEBREX [Suspect]
     Dosage: 400 MG,EVERY SINGLE DAY

REACTIONS (4)
  - BACK DISORDER [None]
  - MENTAL DISORDER [None]
  - MUSCULOSKELETAL DISCOMFORT [None]
  - PAIN [None]
